FAERS Safety Report 11609146 (Version 1)
Quarter: 2015Q4

REPORT INFORMATION
  Report Type: Spontaneous
  Country: US (occurrence: US)
  Receive Date: 20151007
  Receipt Date: 20151007
  Transmission Date: 20160304
  Serious: No
  Sender: FDA-Public Use
  Company Number: ALCN2015US006191

PATIENT
  Sex: Female

DRUGS (1)
  1. SYSTANE BALANCE [Suspect]
     Active Substance: PROPYLENE GLYCOL
     Indication: BLEPHARITIS
     Dosage: 1 GTT, UNK
     Route: 047

REACTIONS (3)
  - Skin discolouration [Recovering/Resolving]
  - Reaction to preservatives [Recovering/Resolving]
  - Eye swelling [Recovering/Resolving]
